FAERS Safety Report 15655618 (Version 9)
Quarter: 2019Q2

REPORT INFORMATION
  Report Type: Spontaneous
  Country: CA (occurrence: CA)
  Receive Date: 20181126
  Receipt Date: 20190621
  Transmission Date: 20190711
  Serious: Yes (Other)
  Sender: FDA-Public Use
  Company Number: CA-CELLTRION INC.-2018CA018442

PATIENT

DRUGS (25)
  1. SYNTHROID [Concomitant]
     Active Substance: LEVOTHYROXINE SODIUM
     Dosage: UNK
     Route: 065
  2. INFLECTRA [Suspect]
     Active Substance: INFLIXIMAB-DYYB
     Indication: RHEUMATOID ARTHRITIS
     Dosage: 350 MG, 0, 2, 6, THEN EVERY 8 WEEKS
     Route: 042
     Dates: start: 20180221
  3. INFLECTRA [Suspect]
     Active Substance: INFLIXIMAB-DYYB
     Dosage: 350 MG, EVERY 6 WEEKS
     Dates: start: 20190606
  4. IRBESARTAN. [Concomitant]
     Active Substance: IRBESARTAN
     Dosage: UNK
     Route: 065
  5. INFLECTRA [Suspect]
     Active Substance: INFLIXIMAB-DYYB
     Dosage: 350 MG, 0, 2, 6, THEN EVERY 8 WEEKS
     Route: 042
     Dates: start: 20180725
  6. INFLECTRA [Suspect]
     Active Substance: INFLIXIMAB-DYYB
     Dosage: 350 MG, 0, 2, 6, THEN EVERY 8 WEEKS
     Route: 042
     Dates: start: 20180918
  7. HYDROXYCHLOROQUINE [Concomitant]
     Active Substance: HYDROXYCHLOROQUINE
     Dosage: 200-400 MG, UNK
     Route: 065
     Dates: start: 20170522
  8. OLESTYR [Concomitant]
     Active Substance: CHOLESTYRAMINE
     Indication: PAIN
     Dosage: UNK
  9. INFLECTRA [Suspect]
     Active Substance: INFLIXIMAB-DYYB
     Dosage: 350 MG, 0, 2, 6, THEN EVERY 8 WEEKS
     Route: 042
     Dates: start: 20180403
  10. INFLECTRA [Suspect]
     Active Substance: INFLIXIMAB-DYYB
     Dosage: 350 MG, 0, 2, 6, THEN EVERY 8 WEEKS
     Route: 042
     Dates: start: 20180531
  11. INFLECTRA [Suspect]
     Active Substance: INFLIXIMAB-DYYB
     Dosage: 350 MG EVERY 6 WEEKS
     Route: 042
     Dates: start: 20190301
  12. INFLECTRA [Suspect]
     Active Substance: INFLIXIMAB-DYYB
     Dosage: 350 MG, EVERY 6 WEEKS
     Dates: start: 20190425
  13. METHOTREXATE. [Concomitant]
     Active Substance: METHOTREXATE
     Dosage: 25 MG, WEEKLY
     Route: 058
     Dates: start: 20170512, end: 2018
  14. LYRICA [Concomitant]
     Active Substance: PREGABALIN
     Dosage: 100 MG, AT BEDTIME
     Route: 065
  15. PANTOLOC [Concomitant]
     Active Substance: PANTOPRAZOLE SODIUM
     Dosage: UNK, 1X/DAY
     Route: 065
  16. LAX-A-DAY [Concomitant]
     Dosage: UNK
     Route: 065
  17. SYMBICORT [Concomitant]
     Active Substance: BUDESONIDE\FORMOTEROL FUMARATE DIHYDRATE
     Dosage: 200 UG, 4X/DAY AS NEEDED
  18. METHOTREXATE. [Concomitant]
     Active Substance: METHOTREXATE
     Dosage: 25 MG, WEEKLY
     Route: 058
     Dates: start: 20170512, end: 2018
  19. LEUCOVORIN. [Concomitant]
     Active Substance: LEUCOVORIN
     Dosage: UNK
  20. VIT D [Concomitant]
     Active Substance: VITAMIN D NOS
     Dosage: 10000 UN, ONCE A WEEK
     Route: 065
  21. TYLENOL [Concomitant]
     Active Substance: ACETAMINOPHEN
     Indication: PAIN
     Dosage: UNK
     Route: 065
  22. INFLECTRA [Suspect]
     Active Substance: INFLIXIMAB-DYYB
     Dosage: 350 MG, 0, 2, 6, THEN EVERY 8 WEEKS
     Route: 042
     Dates: start: 20180307
  23. INFLECTRA [Suspect]
     Active Substance: INFLIXIMAB-DYYB
     Dosage: 350 MG, 0, 2, 6, THEN EVERY 8 WEEKS
     Route: 042
     Dates: start: 20181122
  24. CALCIUM [Concomitant]
     Active Substance: CALCIUM
     Dosage: UNK
     Route: 065
  25. BRENZYS [Concomitant]
     Active Substance: ETANERCEPT
     Dosage: 50 MG, EVERY TUESDAYS
     Route: 058
     Dates: end: 20180206

REACTIONS (25)
  - Musculoskeletal stiffness [Unknown]
  - Neck pain [Unknown]
  - Product use issue [Unknown]
  - Off label use [Unknown]
  - Pain [Unknown]
  - Headache [Recovered/Resolved]
  - Sinusitis [Unknown]
  - Nausea [Unknown]
  - Upper respiratory tract infection [Unknown]
  - Systemic lupus erythematosus [Unknown]
  - Blood pressure fluctuation [Unknown]
  - Heart rate irregular [Not Recovered/Not Resolved]
  - Loss of personal independence in daily activities [Unknown]
  - Ear infection [Unknown]
  - Therapeutic response shortened [Recovered/Resolved]
  - Influenza [Unknown]
  - Fatigue [Unknown]
  - Infusion site pain [Recovered/Resolved]
  - Infusion site oedema [Recovered/Resolved]
  - Hepatic enzyme increased [Recovering/Resolving]
  - Nasopharyngitis [Unknown]
  - Product use issue [Unknown]
  - Condition aggravated [Unknown]
  - General physical health deterioration [Unknown]
  - Off label use [Unknown]

NARRATIVE: CASE EVENT DATE: 2018
